FAERS Safety Report 21437551 (Version 2)
Quarter: 2024Q2

REPORT INFORMATION
  Report Type: Spontaneous
  Country: US (occurrence: US)
  Receive Date: 20221011
  Receipt Date: 20240612
  Transmission Date: 20240716
  Serious: Yes (Other)
  Sender: FDA-Public Use
  Company Number: US-ABBVIE-4146109

PATIENT
  Sex: Female

DRUGS (3)
  1. HUMIRA [Suspect]
     Active Substance: ADALIMUMAB
     Indication: Product used for unknown indication
     Route: 058
     Dates: start: 200006
  2. HUMIRA [Suspect]
     Active Substance: ADALIMUMAB
     Route: 058
     Dates: end: 2002
  3. PREDNISONE [Concomitant]
     Active Substance: PREDNISONE
     Indication: Pain

REACTIONS (9)
  - Bladder cancer [Unknown]
  - Pain [Unknown]
  - Arthralgia [Unknown]
  - Rotator cuff syndrome [Unknown]
  - Road traffic accident [Unknown]
  - Joint swelling [Unknown]
  - Gait inability [Unknown]
  - Limb injury [Unknown]
  - Back injury [Unknown]

NARRATIVE: CASE EVENT DATE: 20190101
